FAERS Safety Report 6978394-2 (Version None)
Quarter: 2010Q3

REPORT INFORMATION
  Report Type: 
  Country: None (occurrence: None)
  Receive Date: 20100908
  Receipt Date: 20100823
  Transmission Date: 20110219
  Serious: Yes (Disabling, Other)
  Sender: FDA-Public Use
  Company Number: ACO_01974_2010

PATIENT
  Sex: Male
  Weight: 122.4712 kg

DRUGS (6)
  1. AMPYRA [Suspect]
     Indication: GAIT DISTURBANCE
     Dosage: 10 MG BID, ORAL
     Route: 048
     Dates: start: 20100701, end: 20100724
  2. BACLOFEN [Concomitant]
  3. FLOMAX [Concomitant]
  4. PROZAC [Concomitant]
  5. LASIX [Concomitant]
  6. POTASSIUM [Concomitant]

REACTIONS (8)
  - BALANCE DISORDER [None]
  - DYSSTASIA [None]
  - HYPOKINESIA [None]
  - MULTIPLE SCLEROSIS RELAPSE [None]
  - SENSORY LOSS [None]
  - URINARY TRACT INFECTION [None]
  - VISION BLURRED [None]
  - VISUAL IMPAIRMENT [None]
